FAERS Safety Report 21543619 (Version 1)
Quarter: 2022Q4

REPORT INFORMATION
  Report Type: Spontaneous
  Country: CA (occurrence: CA)
  Receive Date: 20221102
  Receipt Date: 20221102
  Transmission Date: 20230112
  Serious: Yes (Hospitalization)
  Sender: FDA-Public Use
  Company Number: CA-BAXTER-2022BAX023114

PATIENT
  Age: 70 Year
  Sex: Female
  Weight: 66 kg

DRUGS (11)
  1. CEFTRIAXONE [Suspect]
     Active Substance: CEFTRIAXONE
     Indication: Urinary tract infection
     Dosage: 1 GRAM, ONE EVERY ONE DAY (DOSAGE FORM: POWDER FOR SOLUTION INTRAMUSCULAR)
     Route: 042
  2. CEPHALEXIN [Suspect]
     Active Substance: CEPHALEXIN
     Indication: Urinary tract infection
     Dosage: 500 MILLIGRAM, TWO EVERY ONE DAYS
     Route: 048
  3. ACETAMINOPHEN [Concomitant]
     Active Substance: ACETAMINOPHEN
     Dosage: DOSAGE FORM: NOT SPECIFIED
     Route: 065
  4. ATORVASTATIN CALCIUM [Concomitant]
     Active Substance: ATORVASTATIN CALCIUM
     Route: 065
  5. CYANOCOBALAMIN [Concomitant]
     Active Substance: CYANOCOBALAMIN
     Dosage: DOSAGE FORM: NOT SPECIFIED
     Route: 065
  6. DULOXETINE HYDROCHLORIDE [Concomitant]
     Active Substance: DULOXETINE HYDROCHLORIDE
     Dosage: CAPSULE, DELAYED RELEASE
     Route: 065
  7. ENOXAPARIN [Concomitant]
     Active Substance: ENOXAPARIN
     Route: 065
  8. FERROUS FUMARATE [Concomitant]
     Active Substance: FERROUS FUMARATE
     Dosage: DOSAGE FORM: NOT SPECIFIED
     Route: 065
  9. GABAPENTIN [Concomitant]
     Active Substance: GABAPENTIN
     Dosage: DOSAGE FORM: NOT SPECIFIED
     Route: 065
  10. LEVOTHYROXINE [Concomitant]
     Active Substance: LEVOTHYROXINE
     Dosage: DOSAGE FORM: NOT SPECIFIED
     Route: 065
  11. PANTOPRAZOLE [Concomitant]
     Active Substance: PANTOPRAZOLE
     Dosage: DOSAGE FORM: NOT SPECIFIED
     Route: 065

REACTIONS (6)
  - Clostridium test positive [Not Recovered/Not Resolved]
  - Cough [Not Recovered/Not Resolved]
  - Confusional state [Not Recovered/Not Resolved]
  - Lethargy [Not Recovered/Not Resolved]
  - Diarrhoea [Not Recovered/Not Resolved]
  - Pyrexia [Not Recovered/Not Resolved]
